FAERS Safety Report 15761860 (Version 1)
Quarter: 2018Q4

REPORT INFORMATION
  Report Type: Spontaneous
  Country: US (occurrence: US)
  Receive Date: 20181226
  Receipt Date: 20181226
  Transmission Date: 20190205
  Serious: No
  Sender: FDA-Public Use
  Company Number: US-SUNOVION-2018SUN004927

PATIENT
  Sex: Male

DRUGS (2)
  1. LITHIUM. [Suspect]
     Active Substance: LITHIUM
     Dosage: UNK
     Route: 065
  2. LATUDA [Suspect]
     Active Substance: LURASIDONE HYDROCHLORIDE
     Dosage: UNK
     Route: 048
     Dates: start: 20181212

REACTIONS (10)
  - Nausea [Recovered/Resolved]
  - Balance disorder [Recovered/Resolved]
  - Cyclothymic disorder [Unknown]
  - Scab [Unknown]
  - Night sweats [Unknown]
  - Dizziness [Recovered/Resolved]
  - Feeling abnormal [Unknown]
  - Middle insomnia [Unknown]
  - Scratch [Unknown]
  - Tremor [Unknown]

NARRATIVE: CASE EVENT DATE: 20181212
